FAERS Safety Report 6014582-X (Version None)
Quarter: 2008Q4

REPORT INFORMATION
  Report Type: 
  Country: None (occurrence: None)
  Receive Date: 20081219
  Receipt Date: 20080902
  Transmission Date: 20090506
  Serious: No
  Sender: FDA-Public Use
  Company Number: A0745392A

PATIENT
  Age: 76 Year
  Sex: Male

DRUGS (2)
  1. AVODART [Suspect]
     Indication: BENIGN PROSTATIC HYPERPLASIA
     Dosage: .5MG PER DAY
     Route: 048
     Dates: start: 20080808
  2. CIPRO [Concomitant]

REACTIONS (4)
  - CONSTIPATION [None]
  - DYSURIA [None]
  - FLATULENCE [None]
  - MUCOUS STOOLS [None]
